FAERS Safety Report 14163081 (Version 1)
Quarter: 2017Q4

REPORT INFORMATION
  Report Type: Report from Study
  Country: UA (occurrence: UA)
  Receive Date: 20171106
  Receipt Date: 20171106
  Transmission Date: 20180321
  Serious: Yes (Other)
  Sender: FDA-Public Use
  Company Number: UA-TEVA-820695ISR

PATIENT
  Age: 60 Year
  Sex: Male

DRUGS (1)
  1. VAZAR [Suspect]
     Active Substance: VALSARTAN

REACTIONS (2)
  - Extrasystoles [Unknown]
  - Angina pectoris [Unknown]
